FAERS Safety Report 8273004-9 (Version None)
Quarter: 2012Q2

REPORT INFORMATION
  Report Type: 
  Country: None (occurrence: None)
  Receive Date: 20120411
  Receipt Date: 20120403
  Transmission Date: 20120825
  Serious: Yes (Hospitalization)
  Sender: FDA-Public Use
  Company Number: US-BAYER-2012-030752

PATIENT
  Age: 52 Year
  Sex: Female

DRUGS (5)
  1. DROSPIRENONE AND ETHINYL ESTRADIOL [Suspect]
     Dosage: UNK
     Dates: start: 20071220, end: 20110502
  2. SYNTHROID [Concomitant]
     Dosage: 100 MCG/24HR, UNK
  3. DROSPIRENONE AND ETHINYL ESTRADIOL [Suspect]
     Dosage: UNK
     Dates: start: 20071220, end: 20110502
  4. BLACK COHOSH [Concomitant]
  5. YASMIN [Suspect]
     Dosage: UNK
     Dates: start: 20071220, end: 20110502

REACTIONS (9)
  - DYSPNOEA [None]
  - BLOOD PRESSURE INCREASED [None]
  - PAIN [None]
  - GENERAL PHYSICAL HEALTH DETERIORATION [None]
  - PULMONARY EMBOLISM [None]
  - INJURY [None]
  - ANXIETY [None]
  - EMOTIONAL DISTRESS [None]
  - ANHEDONIA [None]
